FAERS Safety Report 8124810-2 (Version None)
Quarter: 2012Q1

REPORT INFORMATION
  Report Type: 
  Country: None (occurrence: None)
  Receive Date: 20120209
  Receipt Date: 20120202
  Transmission Date: 20120608
  Serious: Yes (Hospitalization)
  Sender: FDA-Public Use
  Company Number: CA-JNJFOC-20120204164

PATIENT
  Age: 54 Year
  Sex: Female

DRUGS (2)
  1. INVEGA SUSTENNA [Suspect]
     Indication: SCHIZOPHRENIA
     Route: 065
     Dates: start: 20111212
  2. INVEGA SUSTENNA [Suspect]
     Route: 065

REACTIONS (2)
  - SUICIDAL BEHAVIOUR [None]
  - SCHIZOPHRENIA [None]
